FAERS Safety Report 7724590-6 (Version None)
Quarter: 2011Q3

REPORT INFORMATION
  Report Type: 
  Country: None (occurrence: None)
  Receive Date: 20110901
  Receipt Date: 20110819
  Transmission Date: 20111222
  Serious: No
  Sender: FDA-Public Use
  Company Number: US-B.I. PHARMACEUTICALS,INC./RIDGEFIELD-2011-BP-17060BP

PATIENT
  Sex: Female
  Weight: 95.25 kg

DRUGS (10)
  1. METFORMIN [Concomitant]
  2. PRADAXA [Suspect]
     Indication: CARDIAC DISORDER
  3. NIFEDICAL [Concomitant]
  4. ACTOS [Concomitant]
  5. PRADAXA [Suspect]
     Indication: ATRIAL FIBRILLATION
  6. METOPROLOL TARTRATE [Concomitant]
  7. SIMAVASTATIN [Concomitant]
  8. PRADAXA [Suspect]
     Indication: CEREBROVASCULAR ACCIDENT PROPHYLAXIS
     Dosage: 300 MG
     Route: 048
     Dates: start: 20110616, end: 20110705
  9. LEVOTHYROXINE SODIUM [Concomitant]
  10. LOSARTAN POT [Concomitant]

REACTIONS (2)
  - OCULAR HYPERAEMIA [None]
  - DIZZINESS POSTURAL [None]
